FAERS Safety Report 16279333 (Version 1)
Quarter: 2019Q2

REPORT INFORMATION
  Report Type: Spontaneous
  Country: FR (occurrence: FR)
  Receive Date: 20190507
  Receipt Date: 20190507
  Transmission Date: 20190711
  Serious: Yes (Hospitalization, Other)
  Sender: FDA-Public Use
  Company Number: FR-AUROBINDO-AUR-APL-2019-024309

PATIENT

DRUGS (6)
  1. HIZENTRA [Suspect]
     Active Substance: HUMAN IMMUNOGLOBULIN G
     Indication: IMMUNODEFICIENCY
     Dosage: 4 GRAM ONCE IN A WEEK
     Route: 058
     Dates: start: 2018
  2. LEDERFOLINE [Suspect]
     Active Substance: LEUCOVORIN CALCIUM
     Indication: VITAMIN SUPPLEMENTATION
     Dosage: 25 MILLIGRAM  ONCE IN A WEEK
     Route: 048
     Dates: start: 2018
  3. VALACICLOVIR [Suspect]
     Active Substance: VALACYCLOVIR HYDROCHLORIDE
     Indication: IMMUNODEFICIENCY
     Dosage: 500 MILLIGRAM, ONCE A DAY
     Route: 048
     Dates: start: 2018
  4. BACTRIM [Suspect]
     Active Substance: SULFAMETHOXAZOLE\TRIMETHOPRIM
     Indication: INFECTION PROPHYLAXIS
     Dosage: 3 DOSAGE FORM ONCE IN A WEEK (400/80MG 3 1 SEMAINE)
     Route: 048
     Dates: start: 2018
  5. ORACILLINE [Suspect]
     Active Substance: PENICILLIN V
     Indication: INFECTION PROPHYLAXIS
     Dosage: 2 MEGA-INTERNATIONAL UNIT, ONCE A DAY
     Route: 048
     Dates: start: 2018
  6. GLIVEC [Suspect]
     Active Substance: IMATINIB MESYLATE
     Indication: ACUTE LYMPHOCYTIC LEUKAEMIA
     Dosage: 600 MILLIGRAM, ONCE A DAY
     Route: 048
     Dates: start: 20180613

REACTIONS (1)
  - Pericarditis [Recovered/Resolved]

NARRATIVE: CASE EVENT DATE: 20190227
